FAERS Safety Report 7492271-2 (Version None)
Quarter: 2011Q2

REPORT INFORMATION
  Report Type: 
  Country: None (occurrence: None)
  Receive Date: 20110519
  Receipt Date: 20110510
  Transmission Date: 20111010
  Serious: Yes (Hospitalization, Other)
  Sender: FDA-Public Use
  Company Number: FR-ELI_LILLY_AND_COMPANY-FR201105002556

PATIENT
  Sex: Female

DRUGS (9)
  1. DEXAMETHASONE [Concomitant]
     Dosage: UNK
     Dates: start: 20101106
  2. BACTRIM [Concomitant]
     Dosage: UNK, 2/W
     Dates: start: 20101001
  3. GEMZAR [Suspect]
     Dosage: 1.5 G, UNKNOWN EACH CYCLE
     Route: 042
     Dates: start: 20101201
  4. CYTARABINE [Concomitant]
     Dosage: UNK
     Dates: start: 20101106
  5. MAGNE-B6 [Concomitant]
     Dosage: UNK
     Dates: start: 20101001
  6. VALACYCLOVIR HYDROCHLORIDE [Concomitant]
     Dosage: UNK
     Dates: start: 20101001
  7. CISPLATIN [Concomitant]
     Dosage: UNK
     Dates: start: 20101106
  8. BISOPROLOL FUMARATE [Concomitant]
     Dosage: UNK UNK, QD
     Dates: start: 20101001
  9. FOLIC ACID [Concomitant]
     Dosage: UNK
     Dates: start: 20101001

REACTIONS (6)
  - ANAEMIA MACROCYTIC [None]
  - THROMBOCYTOPENIA [None]
  - HAEMOLYTIC ANAEMIA [None]
  - GENERALISED OEDEMA [None]
  - CARDIAC FAILURE ACUTE [None]
  - RENAL FAILURE [None]
